FAERS Safety Report 5001461-X (Version None)
Quarter: 2006Q2

REPORT INFORMATION
  Report Type: 
  Country: None (occurrence: None)
  Receive Date: 20060512
  Receipt Date: 20050718
  Transmission Date: 20061013
  Serious: Yes (Hospitalization, Other)
  Sender: FDA-Public Use
  Company Number: US-MERCK-0507USA02244

PATIENT
  Age: 81 Year
  Sex: Female
  Weight: 61 kg

DRUGS (8)
  1. SYNTHROID [Concomitant]
     Route: 065
  2. ZOLOFT [Concomitant]
     Route: 065
  3. VIOXX [Suspect]
     Indication: ARTHRALGIA
     Route: 048
     Dates: start: 20000512, end: 20040727
  4. VIOXX [Suspect]
     Route: 048
     Dates: start: 20000512, end: 20040727
  5. XANAX [Concomitant]
     Route: 065
  6. LIPITOR [Concomitant]
     Route: 065
  7. LANOXIN [Concomitant]
     Route: 065
  8. PREMARIN [Concomitant]
     Route: 065

REACTIONS (33)
  - ABDOMINAL DISTENSION [None]
  - ANXIETY [None]
  - AORTIC ANEURYSM [None]
  - ARTHROPOD STING [None]
  - BACK INJURY [None]
  - CARDIAC FAILURE CONGESTIVE [None]
  - CHEST PAIN [None]
  - CORONARY ARTERY DISEASE [None]
  - CYST [None]
  - DEPRESSION [None]
  - DIZZINESS [None]
  - DYSPNOEA [None]
  - EYELID INFECTION [None]
  - FALL [None]
  - GLUCOSE TOLERANCE IMPAIRED [None]
  - GRANULOMA [None]
  - HAEMATOCRIT DECREASED [None]
  - HYPERCALCAEMIA [None]
  - HYPERSENSITIVITY [None]
  - LABYRINTHITIS [None]
  - LIGAMENT SPRAIN [None]
  - MUSCLE SPASMS [None]
  - MYOCARDIAL INFARCTION [None]
  - OVERDOSE [None]
  - PALPITATIONS [None]
  - PTERYGIUM [None]
  - RENAL FAILURE [None]
  - SINUSITIS [None]
  - SKIN PAPILLOMA [None]
  - STRESS INCONTINENCE [None]
  - TEMPOROMANDIBULAR JOINT SYNDROME [None]
  - TOOTH ABSCESS [None]
  - URINARY TRACT INFECTION [None]
